FAERS Safety Report 5327755-6 (Version None)
Quarter: 2007Q2

REPORT INFORMATION
  Report Type: 
  Country: None (occurrence: None)
  Receive Date: 20070226
  Receipt Date: 20060602
  Transmission Date: 20071010
  Serious: Yes (Other)
  Sender: FDA-Public Use
  Company Number: DSA_28219_2006

PATIENT
  Age: 69 Year
  Sex: Female

DRUGS (4)
  1. ENALAPRIL MALEATE [Suspect]
     Indication: BLOOD PRESSURE
     Dosage: 2.5 MG Q DAY PO
     Route: 048
  2. DIGOXIN [Concomitant]
  3. WARFARIN [Concomitant]
  4. POTASSIUM ACETATE [Concomitant]

REACTIONS (2)
  - DYSPNOEA [None]
  - MUSCULAR WEAKNESS [None]
